FAERS Safety Report 7963547-7 (Version None)
Quarter: 2011Q4

REPORT INFORMATION
  Report Type: 
  Country: None (occurrence: None)
  Receive Date: 20111208
  Receipt Date: 20111115
  Transmission Date: 20120403
  Serious: No
  Sender: FDA-Public Use
  Company Number: US-BAYER-2011-110793

PATIENT
  Sex: Female

DRUGS (3)
  1. MIRENA [Suspect]
     Indication: CONTRACEPTION
     Dosage: 20 ?G/D, CONT
     Route: 015
     Dates: start: 20110428
  2. ZOLOFT [Concomitant]
  3. INOSITOL [Concomitant]
     Dosage: UNK UNK, QD

REACTIONS (5)
  - HORMONE LEVEL ABNORMAL [None]
  - HEADACHE [None]
  - ANXIETY [None]
  - SLEEP DISORDER [None]
  - ABDOMINAL PAIN UPPER [None]
